FAERS Safety Report 7692485-2 (Version None)
Quarter: 2011Q3

REPORT INFORMATION
  Report Type: 
  Country: None (occurrence: None)
  Receive Date: 20110819
  Receipt Date: 20110812
  Transmission Date: 20111222
  Serious: Yes (Hospitalization, Other)
  Sender: FDA-Public Use
  Company Number: US-BRISTOL-MYERS SQUIBB COMPANY-15968688

PATIENT
  Age: 60 Year
  Sex: Male
  Weight: 74 kg

DRUGS (1)
  1. VIDEX [Suspect]
     Indication: HIV INFECTION
     Dates: start: 20010101, end: 20050101

REACTIONS (2)
  - PORTAL VEIN THROMBOSIS [None]
  - PORTAL HYPERTENSION [None]
